FAERS Safety Report 8308222-4 (Version None)
Quarter: 2012Q2

REPORT INFORMATION
  Report Type: 
  Country: None (occurrence: None)
  Receive Date: 20120424
  Receipt Date: 20120312
  Transmission Date: 20120825
  Serious: Yes (Other)
  Sender: FDA-Public Use
  Company Number: JP-JHP PHARMACEUTICALS, LLC-JHP201200150

PATIENT
  Sex: Male

DRUGS (12)
  1. DIAZEPAM [Concomitant]
     Dosage: UNK
     Dates: start: 20101001
  2. SENNOSIDE [Concomitant]
     Dosage: UNK
     Dates: start: 20071226
  3. AKIRIDEN [Concomitant]
     Dosage: UNK
     Dates: start: 20101001
  4. VALPROATE SODIUM [Concomitant]
     Dosage: UNK
     Dates: start: 20101001
  5. DANTRIUM [Suspect]
     Indication: NEUROLEPTIC MALIGNANT SYNDROME
     Dosage: 20 MG, DAILY
     Route: 041
     Dates: start: 20120123, end: 20120130
  6. DANTRIUM [Concomitant]
     Dosage: 75 MG, DAILY
     Dates: start: 20120130, end: 20120203
  7. CELLKAM [Concomitant]
     Dosage: UNK
     Dates: start: 20100901
  8. CLONAZEPAM [Concomitant]
     Dosage: UNK
  9. NIFEDIPINE [Concomitant]
     Dosage: UNK
     Dates: start: 20090101
  10. LITHIUM CARBONATE [Concomitant]
     Dosage: UNK
     Dates: start: 20120123, end: 20120123
  11. PENTONA [Concomitant]
     Dosage: UNK
     Dates: start: 20100810
  12. LEMONAMIN [Concomitant]
     Dosage: UNK
     Dates: start: 20001001, end: 20120123

REACTIONS (1)
  - PYREXIA [None]
